FAERS Safety Report 5114752-9 (Version None)
Quarter: 2006Q3

REPORT INFORMATION
  Report Type: 
  Country: None (occurrence: None)
  Receive Date: 20060922
  Receipt Date: 20060912
  Transmission Date: 20061208
  Serious: Yes (Other)
  Sender: FDA-Public Use
  Company Number: 2006111803

PATIENT
  Age: 44 Year
  Sex: Male
  Weight: 90.7194 kg

DRUGS (9)
  1. LIPITOR [Suspect]
     Indication: BLOOD CHOLESTEROL INCREASED
  2. LIPITOR [Suspect]
     Indication: OVERWEIGHT
  3. INSULIN (INSULIN) [Concomitant]
  4. ASPIRIN [Concomitant]
  5. ATENOLOL [Concomitant]
  6. ZANTAC [Concomitant]
  7. ENALAPRIL MALEATE [Concomitant]
  8. CILOSTAZOL [Concomitant]
  9. TRILEPTAL [Concomitant]

REACTIONS (10)
  - ABASIA [None]
  - ABDOMINAL PAIN UPPER [None]
  - AMNESIA [None]
  - CARDIAC DISORDER [None]
  - DIABETIC NEUROPATHY [None]
  - DIARRHOEA [None]
  - FLATULENCE [None]
  - MUSCLE SPASMS [None]
  - PAIN IN EXTREMITY [None]
  - WEIGHT DECREASED [None]
